FAERS Safety Report 19273582 (Version 8)
Quarter: 2022Q1

REPORT INFORMATION
  Report Type: Spontaneous
  Country: GB (occurrence: GB)
  Receive Date: 20210519
  Receipt Date: 20220215
  Transmission Date: 20220424
  Serious: Yes (Death, Congenital Anomaly, Other)
  Sender: FDA-Public Use
  Company Number: GB-GILEAD-2021-0527449

PATIENT
  Age: 8 Month
  Sex: Female
  Weight: 2.5 kg

DRUGS (11)
  1. ABACAVIR\LAMIVUDINE [Suspect]
     Active Substance: ABACAVIR\LAMIVUDINE
     Indication: HIV infection
     Dosage: 1 DOSAGE FORM, ONCE A DAY(1 DOSAGE FORM, QD)
     Route: 064
     Dates: start: 20200601, end: 20200801
  2. EMTRICITABINE\TENOFOVIR [Suspect]
     Active Substance: EMTRICITABINE\TENOFOVIR
     Indication: HIV infection
     Dosage: 1 DOSAGE FORM, ONCE A DAY
     Route: 064
     Dates: start: 20200601, end: 20200801
  3. TENOFOVIR DISOPROXIL [Suspect]
     Active Substance: TENOFOVIR DISOPROXIL
     Indication: Product used for unknown indication
     Dosage: 1 DOSAGE FORM (2ND TRIMESTER)
     Route: 064
     Dates: start: 20200801
  4. DESCOVY [Suspect]
     Active Substance: EMTRICITABINE\TENOFOVIR ALAFENAMIDE FUMARATE
     Indication: Product used for unknown indication
     Dosage: UNK
     Route: 064
  5. DESCOVY [Suspect]
     Active Substance: EMTRICITABINE\TENOFOVIR ALAFENAMIDE FUMARATE
     Dosage: 1 DOSAGE FORM, ONCE A DAY(MATERNAL DOSE)
     Route: 064
  6. EMTRICITABINE [Suspect]
     Active Substance: EMTRICITABINE
     Indication: Product used for unknown indication
     Dosage: UNK
     Route: 064
  7. ISENTRESS [Suspect]
     Active Substance: RALTEGRAVIR POTASSIUM
     Indication: HIV infection
     Dosage: 1 DOSAGE FORM, ONCE A DAY
     Route: 064
     Dates: start: 20200801
  8. REYATAZ [Suspect]
     Active Substance: ATAZANAVIR SULFATE
     Indication: HIV infection
     Dosage: 1 DOSAGE FORM, ONCE A DAY
     Route: 064
     Dates: start: 20200601, end: 20200801
  9. RITONAVIR [Suspect]
     Active Substance: RITONAVIR
     Indication: HIV infection
     Dosage: 1 DOSAGE FORM, ONCE A DAY
     Route: 064
     Dates: start: 20200601, end: 20200801
  10. TRUVADA [Suspect]
     Active Substance: EMTRICITABINE\TENOFOVIR DISOPROXIL FUMARATE
     Indication: HIV infection
     Dosage: UNK
     Route: 064
  11. TRUVADA [Suspect]
     Active Substance: EMTRICITABINE\TENOFOVIR DISOPROXIL FUMARATE
     Dosage: 1 DOSAGE FORM, ONCE A DAY (MATERNAL DOSE: 1 DF, QD)
     Route: 064
     Dates: start: 20200801

REACTIONS (5)
  - Spina bifida [Fatal]
  - Hydrocephalus [Fatal]
  - Foetal death [Fatal]
  - Premature baby [Fatal]
  - Foetal exposure during pregnancy [Fatal]

NARRATIVE: CASE EVENT DATE: 20200101
